FAERS Safety Report 23864715 (Version 1)
Quarter: 2024Q2

REPORT INFORMATION
  Report Type: Spontaneous
  Country: BR (occurrence: BR)
  Receive Date: 20240516
  Receipt Date: 20240516
  Transmission Date: 20240716
  Serious: Yes (Other)
  Sender: FDA-Public Use
  Company Number: BR-SA-SAC20240514001237

PATIENT
  Age: 3 Year
  Sex: Female

DRUGS (1)
  1. SABRIL [Suspect]
     Active Substance: VIGABATRIN
     Indication: Infantile spasms
     Dosage: UNK
     Route: 065

REACTIONS (5)
  - Infantile spasms [Unknown]
  - Condition aggravated [Unknown]
  - Seizure [Unknown]
  - Product contamination [Unknown]
  - Metabolic acidosis [Unknown]
